FAERS Safety Report 8119128-8 (Version None)
Quarter: 2012Q1

REPORT INFORMATION
  Report Type: 
  Country: None (occurrence: None)
  Receive Date: 20120207
  Receipt Date: 20120207
  Transmission Date: 20120608
  Serious: Yes (Death, Hospitalization)
  Sender: FDA-Public Use
  Company Number: None

PATIENT
  Age: 61 Year
  Sex: Female

DRUGS (2)
  1. PEGASYS [Concomitant]
     Indication: HEPATITIS C
     Dosage: 180 MCG
     Route: 058
     Dates: start: 20111110, end: 20120118
  2. INCIVEK [Suspect]
     Indication: HEPATITIS C
     Dosage: 750 MG
     Route: 048
     Dates: start: 20111110, end: 20120118

REACTIONS (3)
  - LOCALISED INFECTION [None]
  - SEPSIS [None]
  - BACTERAEMIA [None]
